FAERS Safety Report 4850623-0 (Version None)
Quarter: 2005Q4

REPORT INFORMATION
  Report Type: 
  Country: None (occurrence: None)
  Receive Date: 20051212
  Receipt Date: 20040929
  Transmission Date: 20060501
  Serious: Yes (Hospitalization)
  Sender: FDA-Public Use
  Company Number: GB-AMGEN-UK093569

PATIENT
  Sex: Female
  Weight: 56.2 kg

DRUGS (8)
  1. NEULASTA [Suspect]
     Indication: CHEMOTHERAPY
     Route: 058
     Dates: start: 20040911
  2. ADRIAMYCIN [Concomitant]
     Route: 042
     Dates: start: 20040730
  3. BLEOMYCIN [Concomitant]
     Route: 042
     Dates: start: 20040730
  4. VINBLASTINE [Concomitant]
     Route: 042
     Dates: start: 20040730
  5. DOXORUBICIN HCL [Concomitant]
     Route: 042
     Dates: start: 20040730
  6. ALLOPURINOL [Concomitant]
     Route: 048
     Dates: start: 20040910
  7. GRANISETRON [Concomitant]
     Route: 048
  8. ACYCLOVIR [Concomitant]
     Route: 048

REACTIONS (7)
  - CELLULITIS [None]
  - CONSTIPATION [None]
  - NEUTROPHILIA [None]
  - PYODERMA GANGRENOSUM [None]
  - PYREXIA [None]
  - URINARY TRACT INFECTION [None]
  - VASCULITIS [None]
